FAERS Safety Report 12240533 (Version 3)
Quarter: 2016Q2

REPORT INFORMATION
  Report Type: Spontaneous
  Country: US (occurrence: US)
  Receive Date: 20160405
  Receipt Date: 20160419
  Transmission Date: 20160815
  Serious: Yes (Hospitalization)
  Sender: FDA-Public Use
  Company Number: US-TEVA-649714USA

PATIENT
  Age: 56 Year
  Sex: Male

DRUGS (9)
  1. ACETAMINOPHEN\HYDROCODONE BITARTRATE [Concomitant]
     Active Substance: ACETAMINOPHEN\HYDROCODONE BITARTRATE
     Dosage: 6-7/DAY
     Route: 048
  2. FENTANYL. [Suspect]
     Active Substance: FENTANYL
     Indication: ANALGESIC THERAPY
     Dosage: (TOTAL 24 HOUR DOSE=288 MCG)POST OPERATIVE DAY 1
  3. HYDROMORPHONE [Suspect]
     Active Substance: HYDROMORPHONE
     Indication: ANALGESIC THERAPY
     Dosage: FIRST 24 HOURS POST OPERATIVE DAY 1
     Route: 042
  4. MORPHINE [Suspect]
     Active Substance: MORPHINE
     Indication: ANALGESIC THERAPY
  5. FENTANYL. [Suspect]
     Active Substance: FENTANYL
     Indication: ANALGESIC THERAPY
     Dosage: POST OPERATIVE DAY 1
     Route: 042
  6. FENTANYL. [Suspect]
     Active Substance: FENTANYL
     Indication: ANALGESIC THERAPY
     Dosage: 75 MCG/72 HOURS  ON DAY 20
  7. FENTANYL. [Suspect]
     Active Substance: FENTANYL
     Indication: ANALGESIC THERAPY
     Dosage: POST OPERATIVE DAY 5(12 MCG /HOUR/72 HOURS)
  8. HYDROMORPHONE [Suspect]
     Active Substance: HYDROMORPHONE
     Indication: ANALGESIC THERAPY
     Dosage: FIRST 24 HOURS POST OPERATION; POST OPERATIVE DAY 1
     Route: 048
  9. MORPHINE [Suspect]
     Active Substance: MORPHINE
     Dosage: FIRST 24 HOURS ON POST OPERATIVE DAY 1

REACTIONS (1)
  - Hyperaesthesia [Recovered/Resolved]
